FAERS Safety Report 14453656 (Version 1)
Quarter: 2018Q1

REPORT INFORMATION
  Report Type: Spontaneous
  Country: US (occurrence: US)
  Receive Date: 20180129
  Receipt Date: 20180129
  Transmission Date: 20180509
  Serious: Yes (Hospitalization, Other)
  Sender: FDA-Public Use
  Company Number: US-SA-2018SA019013

PATIENT

DRUGS (6)
  1. TOUJEO [Suspect]
     Active Substance: INSULIN GLARGINE
     Route: 051
  2. VICTOZA [Concomitant]
     Active Substance: LIRAGLUTIDE
     Route: 065
  3. HUMALOG [Concomitant]
     Active Substance: INSULIN LISPRO
     Route: 065
  4. TRAJENTA [Concomitant]
     Active Substance: LINAGLIPTIN
     Route: 065
  5. LANTUS [Suspect]
     Active Substance: INSULIN GLARGINE
     Route: 051
  6. SOLOSTAR [Suspect]
     Active Substance: DEVICE

REACTIONS (7)
  - Renal disorder [Recovered/Resolved]
  - Neuropathic arthropathy [Unknown]
  - Balance disorder [Unknown]
  - Sepsis [Recovered/Resolved]
  - Renal cancer [Not Recovered/Not Resolved]
  - Neuropathy peripheral [Unknown]
  - Wound infection [Unknown]

NARRATIVE: CASE EVENT DATE: 2012
